FAERS Safety Report 6245015-6 (Version None)
Quarter: 2009Q2

REPORT INFORMATION
  Report Type: 
  Country: None (occurrence: None)
  Receive Date: 20090619
  Receipt Date: 20090123
  Transmission Date: 20091009
  Serious: Yes (Hospitalization)
  Sender: FDA-Public Use
  Company Number: 2009PL000092

PATIENT
  Age: 47 Year
  Sex: Female
  Weight: 52 kg

DRUGS (3)
  1. AZATHIOPRINE [Suspect]
     Indication: CROHN'S DISEASE
     Dosage: 100 MG;QD;PO
     Route: 048
     Dates: start: 20061228, end: 20070112
  2. INFLIXIMAB, RECOMBINANT (INFLIXIMAB, RECOMBINANT) LYOPHILIZED POWDER ( [Suspect]
     Indication: CROHN'S DISEASE
     Dosage: 295 MG;QD;IV
     Route: 042
     Dates: start: 20061228, end: 20061228
  3. PREDNISOLONE [Concomitant]

REACTIONS (2)
  - ABDOMINAL PAIN [None]
  - PYREXIA [None]
